FAERS Safety Report 7985213-4 (Version None)
Quarter: 2011Q4

REPORT INFORMATION
  Report Type: 
  Country: None (occurrence: None)
  Receive Date: 20111213
  Receipt Date: 20111205
  Transmission Date: 20120403
  Serious: Yes (Other)
  Sender: FDA-Public Use
  Company Number: DSA_48347_2011

PATIENT
  Sex: Male

DRUGS (6)
  1. LAMICTAL [Suspect]
     Indication: BIPOLAR DISORDER
     Dosage: (25 MG DAILY ORAL)
     Route: 048
     Dates: start: 20111203
  2. PROZAC [Concomitant]
  3. AMITRIPTYLINE HCL [Concomitant]
  4. LITHIUM CARBONATE [Concomitant]
  5. BUPROPION HCL [Suspect]
     Indication: BIPOLAR DISORDER
     Dosage: (75 MG DAILY ORAL)
     Route: 048
     Dates: start: 20100101, end: 20100101
  6. AMBIEN CR [Concomitant]

REACTIONS (3)
  - VIOLENCE-RELATED SYMPTOM [None]
  - BURNING SENSATION [None]
  - AGGRESSION [None]
